FAERS Safety Report 7520574-1 (Version None)
Quarter: 2011Q2

REPORT INFORMATION
  Report Type: 
  Country: None (occurrence: None)
  Receive Date: 20110603
  Receipt Date: 20110525
  Transmission Date: 20111010
  Serious: Yes (Other)
  Sender: FDA-Public Use
  Company Number: US-BIOGENIDEC-2011BI007930

PATIENT
  Age: 39 Year
  Sex: Female

DRUGS (2)
  1. TYSABRI [Suspect]
     Indication: MULTIPLE SCLEROSIS
     Route: 042
     Dates: start: 20070907
  2. AVONEX [Concomitant]
     Indication: MULTIPLE SCLEROSIS
     Route: 030

REACTIONS (7)
  - VOMITING [None]
  - STAPHYLOCOCCAL SEPSIS [None]
  - MUSCULOSKELETAL PAIN [None]
  - ASTHENIA [None]
  - MENTAL IMPAIRMENT [None]
  - PAIN [None]
  - ABDOMINAL DISCOMFORT [None]
